FAERS Safety Report 8058558 (Version 6)
Quarter: 2024Q4

REPORT INFORMATION
  Report Type: Spontaneous
  Country: GB (occurrence: GB)
  Receive Date: 20110728
  Receipt Date: 20241120
  Transmission Date: 20250115
  Serious: Yes (Death, Hospitalization, Other)
  Sender: MYLAN
  Company Number: GB-PFIZER INC-2011168138

PATIENT
  Age: 21 Year
  Sex: Male
  Weight: 120 kg

DRUGS (7)
  1. LYRICA [Suspect]
     Active Substance: PREGABALIN
     Indication: Obsessive-compulsive disorder
     Dosage: 225 MG, 2X/DAY
     Route: 048
     Dates: start: 20091101, end: 20110705
  2. LYRICA [Suspect]
     Active Substance: PREGABALIN
     Indication: Anxiety
  3. FLUOXETINE [Suspect]
     Active Substance: FLUOXETINE HYDROCHLORIDE
     Indication: Obsessive-compulsive disorder
     Dosage: 60 MILLIGRAM, QD (60 MG, 1X/DAY)
     Route: 048
     Dates: start: 20091101, end: 20110705
  4. SEROQUEL [Suspect]
     Active Substance: QUETIAPINE FUMARATE
     Indication: Obsessive-compulsive disorder
     Dosage: 800 MILLIGRAM, QD (800 MG, 1X/DAY)
     Route: 048
     Dates: start: 20091101, end: 20110705
  5. SEROQUEL [Suspect]
     Active Substance: QUETIAPINE FUMARATE
     Indication: Psychotic disorder
  6. PREGABALIN [Suspect]
     Active Substance: PREGABALIN
     Indication: Obsessive-compulsive disorder
     Dosage: 225 MILLIGRAM, BID
     Route: 048
     Dates: start: 20091101, end: 20110705
  7. QUETIAPINE [Suspect]
     Active Substance: QUETIAPINE
     Indication: Obsessive-compulsive disorder
     Dosage: 800 MILLIGRAM, QD
     Route: 048
     Dates: start: 20091101, end: 20110705

REACTIONS (9)
  - Pancreatitis acute [Fatal]
  - Pancreatitis necrotising [Fatal]
  - Rhabdomyolysis [Fatal]
  - Multiple organ dysfunction syndrome [Not Recovered/Not Resolved]
  - Septic shock [Unknown]
  - Hyperpyrexia [Unknown]
  - Abdominal pain [Unknown]
  - Pyrexia [Unknown]
  - Vomiting [Unknown]

NARRATIVE: CASE EVENT DATE: 20110101
